FAERS Safety Report 9293248 (Version 1)
Quarter: 2013Q2

REPORT INFORMATION
  Report Type: Spontaneous
  Country: IL (occurrence: IL)
  Receive Date: 20130516
  Receipt Date: 20130516
  Transmission Date: 20140414
  Serious: Yes (Other)
  Sender: FDA-Public Use
  Company Number: IL-BAXTER-2012BAX012592

PATIENT
  Age: 53 Year
  Sex: Female

DRUGS (2)
  1. GAMMAGARD 10G [Suspect]
     Indication: SYSTEMIC LUPUS ERYTHEMATOSUS
  2. HYDROCORTISONE [Concomitant]
     Indication: PRODUCT USED FOR UNKNOWN INDICATION

REACTIONS (1)
  - Pulmonary embolism [Unknown]
